FAERS Safety Report 7098388-9 (Version None)
Quarter: 2010Q4

REPORT INFORMATION
  Report Type: 
  Country: None (occurrence: None)
  Receive Date: 20101112
  Receipt Date: 20101105
  Transmission Date: 20110411
  Serious: No
  Sender: FDA-Public Use
  Company Number: US-PFIZER INC-2010142104

PATIENT
  Sex: Female
  Weight: 78.005 kg

DRUGS (8)
  1. CHANTIX [Suspect]
     Indication: SMOKING CESSATION THERAPY
     Dosage: 0.5 MG, 1X/DAY
     Route: 048
     Dates: start: 20101006
  2. CHANTIX [Suspect]
     Dosage: 1 MG, UNK
  3. SYNTHROID [Concomitant]
     Indication: HYPERTHYROIDISM
     Dosage: 112 UG, 1X/DAY
     Route: 048
     Dates: start: 19980101
  4. DIOVAN [Concomitant]
     Indication: HYPOTENSION
     Dosage: 80 MG, 1X/DAY
     Route: 048
     Dates: start: 20080101
  5. VENTOLIN [Concomitant]
     Indication: ASTHMA
     Dosage: UNK, AS NEEDED
     Dates: start: 20030101
  6. ADVAIR DISKUS 100/50 [Concomitant]
     Indication: CHRONIC OBSTRUCTIVE PULMONARY DISEASE
     Dosage: UNK
     Dates: start: 20050101
  7. SPIRIVA [Concomitant]
     Indication: DYSPNOEA
     Dosage: UNK
     Dates: start: 20080101
  8. ACETYLSALICYLIC ACID [Concomitant]
     Dosage: 81 MG, UNK

REACTIONS (3)
  - BACK PAIN [None]
  - PAIN [None]
  - PRURITUS [None]
